FAERS Safety Report 8790859 (Version 1)
Quarter: 2012Q4

REPORT INFORMATION
  Report Type: Spontaneous
  Country: US (occurrence: None)
  Receive Date: 20120913
  Receipt Date: 20120913
  Transmission Date: 20130627
  Serious: Yes (Other)
  Sender: FDA-Public Use
  Company Number: None

PATIENT
  Age: 6 Year
  Sex: Female
  Weight: 20.41 kg

DRUGS (1)
  1. CHLORHEXIDINE [Suspect]
     Indication: THERAPEUTIC SKIN CARE TOPICAL
     Dosage: 3ml x1 top
     Route: 061
     Dates: start: 20120702, end: 20120712

REACTIONS (4)
  - Rash [None]
  - Urticaria [None]
  - Pain [None]
  - Blister [None]
